FAERS Safety Report 19946583 (Version 1)
Quarter: 2021Q4

REPORT INFORMATION
  Report Type: Spontaneous
  Country: US (occurrence: US)
  Receive Date: 20211013
  Receipt Date: 20211013
  Transmission Date: 20220303
  Serious: Yes (Life-Threatening, Hospitalization)
  Sender: FDA-Public Use
  Company Number: US-JNJFOC-20210958132

PATIENT
  Age: 52 Year
  Sex: Female

DRUGS (3)
  1. TYLENOL [Suspect]
     Active Substance: ACETAMINOPHEN
     Indication: Accidental overdose
     Dosage: 1500 MG GREATER THAN 12 MONTHS
     Route: 048
     Dates: end: 19991014
  2. ACETAMINOPHEN [Suspect]
     Active Substance: ACETAMINOPHEN
     Indication: Accidental overdose
     Dosage: 4000 MG GREATER THAN 99 DAYS
     Route: 048
     Dates: end: 19991014
  3. VICODIN [Suspect]
     Active Substance: ACETAMINOPHEN\HYDROCODONE BITARTRATE
     Indication: Accidental overdose
     Dosage: ACETAMINOPHEN 500 MG/HYDROCODONE 5 MG
     Route: 048
     Dates: end: 19991014

REACTIONS (7)
  - Staphylococcal infection [Recovered/Resolved]
  - Enterococcal infection [Recovered/Resolved]
  - Aspergillus infection [Recovered/Resolved]
  - Acute respiratory distress syndrome [Not Recovered/Not Resolved]
  - Acute hepatic failure [Recovering/Resolving]
  - Acute kidney injury [Not Recovered/Not Resolved]
  - Accidental overdose [Unknown]

NARRATIVE: CASE EVENT DATE: 19991020
